FAERS Safety Report 6731197-6 (Version None)
Quarter: 2010Q2

REPORT INFORMATION
  Report Type: 
  Country: None (occurrence: None)
  Receive Date: 20100518
  Receipt Date: 20100505
  Transmission Date: 20101027
  Serious: Yes (Other)
  Sender: FDA-Public Use
  Company Number: ES-ELI_LILLY_AND_COMPANY-ES201005001514

PATIENT
  Sex: Female
  Weight: 70 kg

DRUGS (4)
  1. FORTEO [Suspect]
     Indication: OSTEOPOROSIS
     Dosage: 20 UG, DAILY (1/D)
     Route: 058
     Dates: start: 20091226, end: 20100415
  2. HIBOR [Concomitant]
     Indication: POOR PERIPHERAL CIRCULATION
     Dosage: 3500 UL, DAILY (1/D)
     Route: 058
     Dates: start: 20100414
  3. NOLOTIL [Concomitant]
     Indication: PAIN
     Dosage: 575 MG, 2/D
     Route: 048
     Dates: start: 20100414
  4. PARACETAMOL [Concomitant]
     Indication: PAIN
     Dosage: 1 G, 2/D
     Route: 048

REACTIONS (2)
  - PHLEBITIS [None]
  - VARICOSE ULCERATION [None]
